FAERS Safety Report 5362744-7 (Version None)
Quarter: 2007Q2

REPORT INFORMATION
  Report Type: 
  Country: None (occurrence: None)
  Receive Date: 20070619
  Receipt Date: 20070607
  Transmission Date: 20071010
  Serious: Yes (Other)
  Sender: FDA-Public Use
  Company Number: GB-PFIZER INC-2007047174

PATIENT
  Age: 72 Year
  Sex: Female
  Weight: 80.6 kg

DRUGS (5)
  1. DOXAZOSIN MESYLATE [Suspect]
     Indication: HYPERTENSION
     Route: 048
     Dates: start: 20070328, end: 20070430
  2. ACETYLSALICYLIC ACID SRT [Concomitant]
  3. BENDROFLUMETHIAZIDE [Concomitant]
  4. CANDESARTAN [Concomitant]
  5. SIMVASTATIN [Concomitant]

REACTIONS (5)
  - CRYING [None]
  - DIZZINESS [None]
  - FATIGUE [None]
  - JOINT SWELLING [None]
  - PERIPHERAL COLDNESS [None]
